FAERS Safety Report 13581255 (Version 1)
Quarter: 2017Q2

REPORT INFORMATION
  Report Type: Spontaneous
  Country: IL (occurrence: IL)
  Receive Date: 20170525
  Receipt Date: 20170525
  Transmission Date: 20170830
  Serious: Yes (Hospitalization)
  Sender: FDA-Public Use
  Company Number: IL-UNICHEM LABORATORIES LIMITED-UCM201705-000144

PATIENT
  Age: 25 Year
  Sex: Male

DRUGS (4)
  1. DIVALPROEX SODIUM. [Suspect]
     Active Substance: DIVALPROEX SODIUM
  2. CLOBAZAM [Suspect]
     Active Substance: CLOBAZAM
  3. TOPIRAMATE. [Suspect]
     Active Substance: TOPIRAMATE
  4. CARBAMAZEPINE. [Suspect]
     Active Substance: CARBAMAZEPINE

REACTIONS (8)
  - Encephalopathy [Unknown]
  - Seizure [Recovered/Resolved]
  - Gait disturbance [Recovered/Resolved]
  - Disturbance in attention [Recovered/Resolved]
  - Hyperammonaemia [Recovered/Resolved]
  - Drug interaction [Unknown]
  - Fall [Recovered/Resolved]
  - Bradyphrenia [Recovered/Resolved]
